FAERS Safety Report 24259582 (Version 1)
Quarter: 2024Q3

REPORT INFORMATION
  Report Type: Spontaneous
  Country: GB (occurrence: GB)
  Receive Date: 20240828
  Receipt Date: 20240828
  Transmission Date: 20241016
  Serious: Yes (Hospitalization, Disabling, Other)
  Sender: MERCK
  Company Number: GB-MHRA-WEBCOVID-202408241612076260-YQJMN

PATIENT
  Age: 88 Year
  Sex: Female
  Weight: 53 kg

DRUGS (6)
  1. MOLNUPIRAVIR [Suspect]
     Active Substance: MOLNUPIRAVIR
     Dosage: 10 OF 4
     Dates: start: 20240730
  2. HYDROXYUREA [Concomitant]
     Active Substance: HYDROXYUREA
     Indication: Essential thrombocythaemia
     Dosage: UNK
  3. VERAPAMIL [Concomitant]
     Active Substance: VERAPAMIL HYDROCHLORIDE
     Dosage: UNK
  4. CLOPIDOGREL [Concomitant]
     Active Substance: CLOPIDOGREL BISULFATE
     Indication: Essential thrombocythaemia
     Dosage: UNK
  5. PREDNISOLONE [Concomitant]
     Active Substance: PREDNISOLONE
     Dosage: UNK
  6. BENDROFLUMETHIAZIDE [Concomitant]
     Active Substance: BENDROFLUMETHIAZIDE
     Indication: Hypertension
     Dosage: UNK

REACTIONS (7)
  - Hyponatraemia [Unknown]
  - COVID-19 [Unknown]
  - Blood pressure abnormal [Unknown]
  - Fatigue [Unknown]
  - Anxiety [Unknown]
  - Dehydration [Unknown]
  - Nausea [Recovered/Resolved]

NARRATIVE: CASE EVENT DATE: 20240701
